FAERS Safety Report 12197040 (Version 1)
Quarter: 2016Q1

REPORT INFORMATION
  Report Type: Spontaneous
  Country: FR (occurrence: FR)
  Receive Date: 20160321
  Receipt Date: 20160321
  Transmission Date: 20160526
  Serious: Yes (Hospitalization)
  Sender: FDA-Public Use
  Company Number: FR-BAXTER-2016BAX012000

PATIENT
  Age: 25 Year
  Sex: Male

DRUGS (11)
  1. UROMITEXAN 600 MG, COMPRIM? [Suspect]
     Active Substance: MESNA
     Indication: PRODUCT USED FOR UNKNOWN INDICATION
     Route: 048
     Dates: start: 20160119, end: 20160119
  2. CISPLATINE [Suspect]
     Active Substance: CISPLATIN
     Indication: OSTEOSARCOMA
     Dosage: API CYCLE
     Route: 042
     Dates: start: 20160119, end: 20160122
  3. METHYLENE BLUE. [Concomitant]
     Active Substance: METHYLENE BLUE
     Indication: PREMEDICATION
     Dosage: INFUSION FOR API-AI CYCLE
     Route: 065
  4. DOXORUBICINE [Suspect]
     Active Substance: DOXORUBICIN
     Indication: OSTEOSARCOMA
     Dosage: API CYCLE
     Route: 042
     Dates: start: 20160119, end: 20160122
  5. DOXORUBICINE [Suspect]
     Active Substance: DOXORUBICIN
     Dosage: API-AI CYCLE
     Route: 042
     Dates: start: 20160202, end: 20160204
  6. GLUCIDION G5 [Concomitant]
     Indication: PREMEDICATION
     Dosage: INFUSION FOR API-AI CYCLE
     Route: 065
  7. HOLOXAN 2000 MG, POUDRE POUR USAGE PARENT?RAL [Suspect]
     Active Substance: IFOSFAMIDE
     Indication: OSTEOSARCOMA
     Dosage: API CYCLE
     Route: 042
     Dates: start: 20160119, end: 20160122
  8. THIAMINE. [Concomitant]
     Active Substance: THIAMINE
     Indication: PREMEDICATION
     Dosage: INFUSION FOR API-AI CYCLE
     Route: 065
  9. CISPLATINE [Suspect]
     Active Substance: CISPLATIN
     Dosage: API-AI CYCLE
     Route: 042
     Dates: start: 20160202, end: 20160204
  10. HOLOXAN 2000 MG, POUDRE POUR USAGE PARENT?RAL [Suspect]
     Active Substance: IFOSFAMIDE
     Dosage: API-AI CYCLE
     Route: 042
     Dates: start: 20160202, end: 20160204
  11. MESNA EG [Suspect]
     Active Substance: MESNA
     Indication: PRODUCT USED FOR UNKNOWN INDICATION
     Route: 042
     Dates: start: 20160119, end: 20160119

REACTIONS (1)
  - Encephalopathy [Recovered/Resolved]

NARRATIVE: CASE EVENT DATE: 20160119
